FAERS Safety Report 9462197 (Version 1)
Quarter: 2013Q3

REPORT INFORMATION
  Report Type: Spontaneous
  Country: US (occurrence: None)
  Receive Date: 20130815
  Receipt Date: 20130815
  Transmission Date: 20140515
  Serious: Yes (Hospitalization)
  Sender: FDA-Public Use
  Company Number: None

PATIENT
  Sex: Female
  Weight: 97 kg

DRUGS (18)
  1. GLIPIZIDE [Suspect]
     Indication: DIABETES MELLITUS
     Route: 048
  2. DIOVAN [Concomitant]
  3. BISMUTH SUBSALICYLATE [Concomitant]
  4. ALPRAZOLAM [Concomitant]
  5. ASA [Concomitant]
  6. NYSTATIN [Concomitant]
  7. MAG [Concomitant]
  8. HYDROCORTISONE [Concomitant]
  9. FLOVENT [Concomitant]
  10. PRILOSEC [Concomitant]
  11. DILTIAZEM [Concomitant]
  12. BYSTOLIC [Concomitant]
  13. TYLENOL [Concomitant]
  14. CALCIUM [Concomitant]
  15. DULCOLAX [Concomitant]
  16. MUI [Concomitant]
  17. CONVALLARIA MAJALIS\CRATAEGUS LAEVIGATA LEAF\PROXYPHYLLINE [Concomitant]
  18. VITAMIN D [Concomitant]

REACTIONS (6)
  - Failure to thrive [None]
  - Hypoglycaemia [None]
  - Asthenia [None]
  - Staphylococcal infection [None]
  - Mobility decreased [None]
  - Blister [None]
